FAERS Safety Report 15939438 (Version 1)
Quarter: 2019Q1

REPORT INFORMATION
  Report Type: Spontaneous
  Country: US (occurrence: US)
  Receive Date: 20190208
  Receipt Date: 20190208
  Transmission Date: 20190417
  Serious: No
  Sender: FDA-Public Use
  Company Number: US-HORIZON-PEN-0123-2019

PATIENT
  Age: 65 Year
  Sex: Male

DRUGS (9)
  1. METOPROLOL. [Concomitant]
     Active Substance: METOPROLOL
  2. CELEBREX [Concomitant]
     Active Substance: CELECOXIB
  3. NEXIUM [Concomitant]
     Active Substance: ESOMEPRAZOLE MAGNESIUM
  4. DIOVAN HCT [Concomitant]
     Active Substance: HYDROCHLOROTHIAZIDE\VALSARTAN
  5. TRICOR [Concomitant]
     Active Substance: FENOFIBRATE
  6. PENNSAID [Suspect]
     Active Substance: DICLOFENAC SODIUM
     Indication: KNEE ARTHROPLASTY
     Dosage: AS NEEDED
  7. ASPIRIN. [Concomitant]
     Active Substance: ASPIRIN
  8. DOXYCYCLINE. [Concomitant]
     Active Substance: DOXYCYCLINE
  9. INSULIN [Concomitant]
     Active Substance: INSULIN NOS

REACTIONS (2)
  - Off label use [Unknown]
  - Infection [Unknown]
